FAERS Safety Report 7266389-3 (Version None)
Quarter: 2011Q1

REPORT INFORMATION
  Report Type: 
  Country: None (occurrence: None)
  Receive Date: 20110131
  Receipt Date: 20110124
  Transmission Date: 20110831
  Serious: Yes (Hospitalization, Other)
  Sender: FDA-Public Use
  Company Number: US-US-EMD SERONO, INC.-7038344

PATIENT
  Sex: Female
  Weight: 68 kg

DRUGS (2)
  1. REBIF [Suspect]
     Indication: MULTIPLE SCLEROSIS
     Route: 058
     Dates: start: 20051217, end: 20101101
  2. PROZAC [Concomitant]
     Indication: DEPRESSION
     Dates: start: 20050101, end: 20101101

REACTIONS (5)
  - DEPRESSION [None]
  - SUICIDE ATTEMPT [None]
  - MENORRHAGIA [None]
  - INTENTIONAL OVERDOSE [None]
  - BREAST CANCER [None]
